FAERS Safety Report 18701771 (Version 1)
Quarter: 2021Q1

REPORT INFORMATION
  Report Type: Spontaneous
  Country: US (occurrence: US)
  Receive Date: 20210105
  Receipt Date: 20210105
  Transmission Date: 20210419
  Serious: Yes (Other)
  Sender: FDA-Public Use
  Company Number: US-PFIZER INC-2020520729

PATIENT

DRUGS (3)
  1. IBUPROFEN. [Interacting]
     Active Substance: IBUPROFEN
     Indication: PEYRONIE^S DISEASE
     Dosage: UNK
  2. GABAPENTIN. [Interacting]
     Active Substance: GABAPENTIN
     Dosage: UNK
  3. VIAGRA [Suspect]
     Active Substance: SILDENAFIL CITRATE
     Dosage: UNK

REACTIONS (2)
  - Dysuria [Unknown]
  - Potentiating drug interaction [Unknown]
